FAERS Safety Report 9528964 (Version 2)
Quarter: 2013Q3

REPORT INFORMATION
  Report Type: Spontaneous
  Country: US (occurrence: US)
  Receive Date: 20130917
  Receipt Date: 20130917
  Transmission Date: 20140515
  Serious: No
  Sender: FDA-Public Use
  Company Number: US-BANPHARM-20131304

PATIENT
  Age: 68 Year
  Sex: Female
  Weight: 61.69 kg

DRUGS (4)
  1. ZYRTEC LIQUID GELS 10 MG [Suspect]
     Indication: HYPERSENSITIVITY
     Dosage: 1 DF, QD,
     Route: 048
  2. HERBAL REMEDIES [Concomitant]
  3. XANAX [Concomitant]
     Indication: INSOMNIA
     Dosage: 0.25 MG,
  4. INSULIN [Concomitant]
     Indication: DIABETES MELLITUS
     Dosage: 17 UNITS, QD,

REACTIONS (1)
  - Drug effect incomplete [Unknown]
